FAERS Safety Report 14701596 (Version 3)
Quarter: 2018Q3

REPORT INFORMATION
  Report Type: Report from Study
  Country: US (occurrence: US)
  Receive Date: 20180331
  Receipt Date: 20180709
  Transmission Date: 20181010
  Serious: No
  Sender: FDA-Public Use
  Company Number: US-ROCHE-2094358

PATIENT
  Age: 52 Year
  Sex: Female
  Weight: 63.56 kg

DRUGS (1)
  1. OCREVUS [Suspect]
     Active Substance: OCRELIZUMAB
     Indication: PRIMARY PROGRESSIVE MULTIPLE SCLEROSIS
     Dosage: 1ST HALF DOSE 06?SEP AND 2ND HALF DOSE 06/OCT/2017
     Route: 042
     Dates: start: 20170906

REACTIONS (6)
  - Cystitis [Recovered/Resolved]
  - Palpitations [Recovered/Resolved]
  - Malaise [Unknown]
  - Drug intolerance [Unknown]
  - Nausea [Recovered/Resolved]
  - Infusion related reaction [Unknown]

NARRATIVE: CASE EVENT DATE: 20180425
